FAERS Safety Report 10080017 (Version 1)
Quarter: 2014Q2

REPORT INFORMATION
  Report Type: Spontaneous
  Country: NL (occurrence: NL)
  Receive Date: 20140415
  Receipt Date: 20140415
  Transmission Date: 20141212
  Serious: Yes (Other)
  Sender: FDA-Public Use
  Company Number: PHHY2014NL042128

PATIENT
  Sex: Male

DRUGS (1)
  1. ULTIBRO BREEZHALER [Suspect]

REACTIONS (2)
  - Glaucoma [Unknown]
  - Intraocular pressure increased [Unknown]
